FAERS Safety Report 5533401-9 (Version None)
Quarter: 2007Q4

REPORT INFORMATION
  Report Type: 
  Country: None (occurrence: None)
  Receive Date: 20071204
  Receipt Date: 20071122
  Transmission Date: 20080405
  Serious: Yes (Death, Hospitalization, Other)
  Sender: FDA-Public Use
  Company Number: JP-PFIZER INC-2007095803

PATIENT
  Age: 83 Year
  Sex: Male

DRUGS (7)
  1. AZULFIDINE EN-TABS [Suspect]
     Indication: RHEUMATOID ARTHRITIS
     Route: 048
  2. RINDERON [Concomitant]
  3. MOBIC [Concomitant]
     Route: 048
  4. ALFACALCIDOL [Concomitant]
     Route: 048
  5. RHEUMATREX [Concomitant]
     Route: 048
  6. BREDININ [Concomitant]
     Route: 048
  7. LIPITOR [Concomitant]
     Route: 048

REACTIONS (4)
  - ANOREXIA [None]
  - FOLATE DEFICIENCY [None]
  - MALAISE [None]
  - PERNICIOUS ANAEMIA [None]
